FAERS Safety Report 5763600-2 (Version None)
Quarter: 2008Q2

REPORT INFORMATION
  Report Type: 
  Country: None (occurrence: None)
  Receive Date: 20080610
  Receipt Date: 20080603
  Transmission Date: 20081010
  Serious: Yes (Other)
  Sender: FDA-Public Use
  Company Number: PHHY2008BR10084

PATIENT
  Age: 51 Year
  Sex: Female

DRUGS (2)
  1. ESTRADERM [Suspect]
     Indication: HORMONE REPLACEMENT THERAPY
     Dosage: 1 PATCH EVERY 3 OR 4 DAYS
     Route: 062
     Dates: start: 20070301
  2. MIOSAN [Concomitant]

REACTIONS (6)
  - BURSITIS [None]
  - DRUG EFFECT DECREASED [None]
  - FIBROMYALGIA [None]
  - HOT FLUSH [None]
  - HYPERHIDROSIS [None]
  - TENDONITIS [None]
